FAERS Safety Report 24269338 (Version 1)
Quarter: 2024Q3

REPORT INFORMATION
  Report Type: Spontaneous
  Country: US (occurrence: None)
  Receive Date: 20240830
  Receipt Date: 20240830
  Transmission Date: 20241017
  Serious: Yes (Other)
  Sender: Public
  Company Number: None

PATIENT
  Age: 55 Year
  Sex: Female

DRUGS (2)
  1. TAVNEOS [Suspect]
     Active Substance: AVACOPAN
     Dosage: FREQUENCY : TWICE A DAY;?
     Route: 048
     Dates: start: 20230228
  2. TAVNEOS [Concomitant]
     Active Substance: AVACOPAN
     Dates: start: 20230228

REACTIONS (1)
  - Liver function test abnormal [None]

NARRATIVE: CASE EVENT DATE: 20240829
